FAERS Safety Report 5996690-2 (Version None)
Quarter: 2008Q4

REPORT INFORMATION
  Report Type: 
  Country: None (occurrence: None)
  Receive Date: 20081212
  Receipt Date: 20081020
  Transmission Date: 20090506
  Serious: No
  Sender: FDA-Public Use
  Company Number: US-ABBOTT-08P-163-0483262-00

PATIENT
  Sex: Female
  Weight: 121.22 kg

DRUGS (9)
  1. HUMIRA [Suspect]
     Indication: PSORIASIS
     Route: 058
     Dates: start: 20080701
  2. ALLOPURINOL [Concomitant]
     Indication: GOUT
     Route: 048
  3. HYDROCHLOROTHIAZIDE [Concomitant]
     Indication: HYPERTENSION
     Route: 048
  4. METFORMIN HCL [Concomitant]
     Indication: DIABETES MELLITUS
     Route: 048
  5. LEVOTHYROXINE SODIUM [Concomitant]
     Indication: HYPOTHYROIDISM
     Route: 048
  6. TELMISARTAN [Concomitant]
     Indication: HYPERTENSION
     Route: 048
  7. NISOLDIPINE [Concomitant]
     Indication: HYPERTENSION
     Route: 048
  8. ETANERCEPT [Concomitant]
     Indication: PSORIASIS
  9. METOPROLOL [Concomitant]
     Indication: DIABETES MELLITUS
     Route: 048

REACTIONS (5)
  - ALOPECIA [None]
  - APHONIA [None]
  - INJECTION SITE PAIN [None]
  - PSORIASIS [None]
  - RASH [None]
